FAERS Safety Report 6543360-8 (Version None)
Quarter: 2010Q1

REPORT INFORMATION
  Report Type: 
  Country: None (occurrence: None)
  Receive Date: 20100120
  Receipt Date: 20100112
  Transmission Date: 20100710
  Serious: Yes (Other)
  Sender: FDA-Public Use
  Company Number: DE-JNJFOC-20091002343

PATIENT
  Sex: Female
  Weight: 70 kg

DRUGS (3)
  1. RISPERDAL CONSTA [Suspect]
     Indication: DELUSION
     Route: 030
     Dates: start: 20010101, end: 20091116
  2. RISPERDAL CONSTA [Suspect]
     Route: 030
     Dates: start: 20010101, end: 20091116
  3. AMIOHEXAL [Concomitant]
     Indication: ARRHYTHMIA
     Route: 065

REACTIONS (4)
  - BLOOD PROLACTIN INCREASED [None]
  - GALACTORRHOEA [None]
  - HYPERTHYROIDISM [None]
  - PITUITARY TUMOUR BENIGN [None]
